FAERS Safety Report 4444083-1 (Version None)
Quarter: 2004Q3

REPORT INFORMATION
  Report Type: 
  Country: None (occurrence: None)
  Receive Date: 20040729
  Receipt Date: 20030827
  Transmission Date: 20050211
  Serious: Yes (Other)
  Sender: FDA-Public Use
  Company Number: US-JNJFOC-20030805799

PATIENT
  Age: 52 Year
  Sex: Male

DRUGS (3)
  1. RISPERDAL [Suspect]
     Indication: DRUG USE FOR UNKNOWN INDICATION
     Dosage: 2 MG, 2 IN 1 DAY; ORAL
     Route: 048
     Dates: start: 19990101
  2. DEPAKOTE [Concomitant]
  3. ATENOLOL [Concomitant]

REACTIONS (1)
  - DIABETES MELLITUS [None]
